FAERS Safety Report 12651332 (Version 1)
Quarter: 2016Q3

REPORT INFORMATION
  Report Type: Spontaneous
  Country: US (occurrence: US)
  Receive Date: 20160815
  Receipt Date: 20160815
  Transmission Date: 20161109
  Serious: No
  Sender: FDA-Public Use
  Company Number: US-BEH-2016072123

PATIENT
  Sex: Female
  Weight: 50.79 kg

DRUGS (18)
  1. SINEMET [Concomitant]
     Active Substance: CARBIDOPA\LEVODOPA
  2. DEXILANT [Concomitant]
     Active Substance: DEXLANSOPRAZOLE
  3. HIZENTRA [Suspect]
     Active Substance: HUMAN IMMUNOGLOBULIN G
     Dosage: 15 G, QOW
     Route: 058
     Dates: start: 20101229
  4. HYDROCORTISONE. [Concomitant]
     Active Substance: HYDROCORTISONE
  5. VALTREX [Concomitant]
     Active Substance: VALACYCLOVIR HYDROCHLORIDE
  6. RELPAX [Concomitant]
     Active Substance: ELETRIPTAN HYDROBROMIDE
  7. CALTRATE                           /00944201/ [Concomitant]
  8. HIZENTRA [Suspect]
     Active Substance: HUMAN IMMUNOGLOBULIN G
     Indication: SELECTIVE IGG SUBCLASS DEFICIENCY
     Route: 058
  9. HIZENTRA [Suspect]
     Active Substance: HUMAN IMMUNOGLOBULIN G
     Dosage: UNK
     Route: 058
  10. DIPHENHYDRAMINE. [Concomitant]
     Active Substance: DIPHENHYDRAMINE
  11. LIDOCAINE. [Concomitant]
     Active Substance: LIDOCAINE
  12. MELATONIN [Concomitant]
     Active Substance: MELATONIN
  13. FEXOFENADINE [Concomitant]
     Active Substance: FEXOFENADINE\FEXOFENADINE HYDROCHLORIDE
  14. HIZENTRA [Suspect]
     Active Substance: HUMAN IMMUNOGLOBULIN G
     Indication: PLASMA CELL MYELOMA
     Dosage: UNK
     Route: 058
  15. BACLOFEN. [Concomitant]
     Active Substance: BACLOFEN
  16. EPINEPHRINE. [Concomitant]
     Active Substance: EPINEPHRINE
  17. BUSPIRONE [Concomitant]
     Active Substance: BUSPIRONE HYDROCHLORIDE
  18. ZYFLO [Concomitant]
     Active Substance: ZILEUTON

REACTIONS (1)
  - Bronchitis [Unknown]
